FAERS Safety Report 20046532 (Version 5)
Quarter: 2022Q1

REPORT INFORMATION
  Report Type: Report from Study
  Country: CA (occurrence: CA)
  Receive Date: 20211109
  Receipt Date: 20220228
  Transmission Date: 20220424
  Serious: Yes (Death, Hospitalization, Other)
  Sender: FDA-Public Use
  Company Number: CA-JNJFOC-20211109773

PATIENT
  Age: 41 Year
  Sex: Female
  Weight: 30 kg

DRUGS (2)
  1. REMICADE [Suspect]
     Active Substance: INFLIXIMAB
     Indication: Crohn^s disease
     Dosage: LAST INFUSION ON 05-OCT-2021,  ALSO RECEIVED INFUSION ON 15-SEP-2017 AND 21-SEP-2017
     Route: 042
     Dates: start: 20170721
  2. REMICADE [Suspect]
     Active Substance: INFLIXIMAB
     Dosage: ON 26-NOV-2021, THE PATIENT RECEIVED LAST INFUSION
     Route: 042
     Dates: start: 20201226

REACTIONS (9)
  - Death [Fatal]
  - Hospitalisation [Unknown]
  - Cardiac disorder [Unknown]
  - Lung disorder [Unknown]
  - Liver disorder [Unknown]
  - Sepsis [Unknown]
  - Cystitis [Unknown]
  - Intestinal obstruction [Recovered/Resolved]
  - Weight decreased [Unknown]

NARRATIVE: CASE EVENT DATE: 20211001
